FAERS Safety Report 10167536 (Version 2)
Quarter: 2014Q2

REPORT INFORMATION
  Report Type: Spontaneous
  Country: US (occurrence: US)
  Receive Date: 20140512
  Receipt Date: 20140523
  Transmission Date: 20141212
  Serious: Yes (Other)
  Sender: FDA-Public Use
  Company Number: US-PERRIGO-14US004667

PATIENT
  Sex: Female
  Weight: 85.71 kg

DRUGS (3)
  1. ACETAMINOPHEN 500MG 484 [Suspect]
     Indication: PAIN
     Dosage: 1000 MG, SINGLE
     Route: 048
     Dates: start: 201310, end: 201310
  2. ACETAMINOPHEN 500MG 484 [Suspect]
     Dosage: 1000 MG, SINGLE
     Route: 048
  3. ACETAMINOPHEN 500MG 484 [Suspect]
     Dosage: 1000 MG, SINGLE
     Route: 048
     Dates: start: 20140430, end: 20140430

REACTIONS (3)
  - Hallucination [Recovered/Resolved]
  - Dizziness [Recovered/Resolved]
  - Vomiting [Recovered/Resolved]
